FAERS Safety Report 17868600 (Version 2)
Quarter: 2020Q2

REPORT INFORMATION
  Report Type: Report from Study
  Country: None (occurrence: US)
  Receive Date: 20200606
  Receipt Date: 20200612
  Transmission Date: 20200714
  Serious: Yes (Hospitalization)
  Sender: FDA-Public Use
  Company Number: US-ABBVIE-20P-163-3426774-00

PATIENT
  Sex: Female

DRUGS (1)
  1. IMBRUVICA [Suspect]
     Active Substance: IBRUTINIB
     Indication: CHRONIC LYMPHOCYTIC LEUKAEMIA
     Route: 048
     Dates: start: 20200327

REACTIONS (9)
  - Chest pain [Unknown]
  - Rectal prolapse repair [Unknown]
  - Middle ear effusion [Unknown]
  - Thrombosis [Unknown]
  - Petechiae [Unknown]
  - Haemoptysis [Unknown]
  - Procedural pain [Unknown]
  - Epistaxis [Unknown]
  - Weight decreased [Unknown]

NARRATIVE: CASE EVENT DATE: 2020
